FAERS Safety Report 5060486-9 (Version None)
Quarter: 2006Q2

REPORT INFORMATION
  Report Type: 
  Country: None (occurrence: None)
  Receive Date: 20060630
  Receipt Date: 20050712
  Transmission Date: 20061013
  Serious: Yes (Disabling, Other)
  Sender: FDA-Public Use
  Company Number: VISP-PR-0507S-0386

PATIENT
  Age: 62 Year
  Sex: Female

DRUGS (3)
  1. VISIPAQUE [Suspect]
     Indication: DRUG USE FOR UNKNOWN INDICATION
     Dosage: 130 ML, SINGLE DOSE, I.A.
     Route: 013
  2. ACETYLCYSTEINE [Concomitant]
  3. SODIUM BICARBONATE [Concomitant]

REACTIONS (1)
  - RENAL FAILURE [None]
